FAERS Safety Report 25871941 (Version 2)
Quarter: 2025Q4

REPORT INFORMATION
  Report Type: Spontaneous
  Country: GB (occurrence: GB)
  Receive Date: 20251002
  Receipt Date: 20251113
  Transmission Date: 20260118
  Serious: Yes (Death, Hospitalization)
  Sender: CELLTRION
  Company Number: GB-CELLTRION INC.-2025GB034996

PATIENT

DRUGS (2)
  1. YUFLYMA [Suspect]
     Active Substance: ADALIMUMAB-AATY
     Indication: Ankylosing spondylitis
     Dosage: 40 MG, EVERY 2 WEEKS
     Route: 058
     Dates: start: 202406, end: 202511
  2. YUFLYMA [Suspect]
     Active Substance: ADALIMUMAB-AATY

REACTIONS (3)
  - Death [Fatal]
  - Hospitalisation [Unknown]
  - Intentional dose omission [Unknown]
